FAERS Safety Report 9061777 (Version 1)
Quarter: 2013Q1

REPORT INFORMATION
  Report Type: Spontaneous
  Country: US (occurrence: US)
  Receive Date: 20130204
  Receipt Date: 20130204
  Transmission Date: 20140127
  Serious: Yes (Hospitalization, Other)
  Sender: FDA-Public Use
  Company Number: PHEH2013US002698

PATIENT
  Sex: Male

DRUGS (5)
  1. EXFORGE [Suspect]
     Indication: HYPERTENSION
     Dosage: 1 DF (160 MG VALS + 5 MG AMLO), QD
     Route: 048
  2. TRENTAL [Concomitant]
  3. PERCOCET [Concomitant]
  4. PREVACID [Concomitant]
  5. XANAX [Concomitant]

REACTIONS (1)
  - Hip fracture [Unknown]
